FAERS Safety Report 16864511 (Version 1)
Quarter: 2019Q3

REPORT INFORMATION
  Report Type: Spontaneous
  Country: DE (occurrence: DE)
  Receive Date: 20190928
  Receipt Date: 20190928
  Transmission Date: 20191005
  Serious: Yes (Congenital Anomaly)
  Sender: FDA-Public Use
  Company Number: DE-ACCORD-155977

PATIENT
  Sex: Male
  Weight: 3.78 kg

DRUGS (9)
  1. PROPOFOL. [Concomitant]
     Active Substance: PROPOFOL
     Indication: GENERAL ANAESTHESIA
     Dosage: ONCE AROUND CONCEPTION OR THE WEEK BEFORE CONCEPTION, 1. - 2. GESTATIONAL WEEK
     Route: 064
  2. HYDROMORPHONE/HYDROMORPHONE HYDROCHLORIDE [Suspect]
     Active Substance: HYDROMORPHONE
     Indication: COMPLEX REGIONAL PAIN SYNDROME
     Dosage: 20 MG/D (BIS 2), 0. - 26.2. GESTATIONAL WEEK
     Route: 064
     Dates: start: 20180512, end: 20181119
  3. VAXIGRIPTETRA [Concomitant]
     Active Substance: INFLUENZA VIRUS VACCINE QUADRIVALENT TYPE A+B
     Indication: IMMUNISATION
     Dosage: 21.4. - 21.4. GESTATIONAL WEEK
     Route: 064
     Dates: start: 20181017, end: 20181017
  4. FOLIC ACID. [Concomitant]
     Active Substance: FOLIC ACID
     Indication: PROPHYLAXIS OF NEURAL TUBE DEFECT
     Route: 064
  5. DUORESP SPIROMAX [Concomitant]
     Active Substance: BUDESONIDE\FORMOTEROL
     Indication: PRODUCT USED FOR UNKNOWN INDICATION
     Dosage: 0. - 39.6. GESTATIONAL WEEK, 4.5 (UG/D (9-0-9)  / 160 (UG/D (320-0-320)
     Route: 064
     Dates: start: 20180519, end: 20190222
  6. SPIRIVA RESPIMAT [Concomitant]
     Active Substance: TIOTROPIUM BROMIDE
     Indication: PRODUCT USED FOR UNKNOWN INDICATION
     Dosage: 2.5 UG/D (BEI BEDARF)/ IF REQUIRED, 0. - 39.6. GESTATIONAL WEEK
     Route: 064
     Dates: start: 20180519, end: 20190222
  7. KETANEST [Concomitant]
     Indication: GENERAL ANAESTHESIA
     Dosage: ONCE AROUND CONCEPTION OR THE WEEK BEFORE CONCEPTION, 1. - 2. GESTATIONAL WEEK
     Route: 064
  8. QUETIAPINE. [Suspect]
     Active Substance: QUETIAPINE
     Indication: COMPLEX REGIONAL PAIN SYNDROME
     Dosage: 0. - 39.6. GESTATIONAL WEEK,
     Route: 064
     Dates: start: 20180512, end: 20190222
  9. VENLAFAXINE/VENLAFAXINE HYDROCHLORIDE [Suspect]
     Active Substance: VENLAFAXINE HYDROCHLORIDE
     Indication: COMPLEX REGIONAL PAIN SYNDROME
     Dosage: 75 MG/D, 0. - 39.6. GESTATIONAL WEEK
     Route: 064
     Dates: start: 20180512, end: 20190222

REACTIONS (5)
  - Congenital megaureter [Unknown]
  - Foetal exposure during pregnancy [Unknown]
  - Off label use [Unknown]
  - Congenital hydronephrosis [Unknown]
  - Kidney duplex [Unknown]
